FAERS Safety Report 22523052 (Version 1)
Quarter: 2023Q2

REPORT INFORMATION
  Report Type: Spontaneous
  Country: GB (occurrence: GB)
  Receive Date: 20230606
  Receipt Date: 20230606
  Transmission Date: 20230721
  Serious: Yes (Death, Life-Threatening, Hospitalization)
  Sender: FDA-Public Use
  Company Number: None

PATIENT
  Age: 76 Year
  Sex: Female
  Weight: 54 kg

DRUGS (26)
  1. TOCILIZUMAB [Suspect]
     Active Substance: TOCILIZUMAB
     Indication: Giant cell arteritis
     Route: 058
     Dates: start: 20200225, end: 20200428
  2. DALTEPARIN SODIUM [Concomitant]
     Active Substance: DALTEPARIN SODIUM
  3. HERBALS\SENNOSIDES [Concomitant]
     Active Substance: HERBALS\SENNOSIDES
  4. LACTULOSE [Concomitant]
     Active Substance: LACTULOSE
  5. CODEINE PHOSPHATE [Concomitant]
     Active Substance: CODEINE PHOSPHATE
  6. CANDESARTAN [Concomitant]
     Active Substance: CANDESARTAN
  7. LIDOCAINE [Concomitant]
     Active Substance: LIDOCAINE
  8. ASPIRIN [Concomitant]
     Active Substance: ASPIRIN
  9. OMEPRAZOLE [Concomitant]
     Active Substance: OMEPRAZOLE
  10. ZOPICLONE [Concomitant]
     Active Substance: ZOPICLONE
  11. CALCIUM CARBONATE\CHOLECALCIFEROL [Concomitant]
     Active Substance: CALCIUM CARBONATE\CHOLECALCIFEROL
  12. PREDNISOLONE [Concomitant]
     Active Substance: PREDNISOLONE
  13. EPLERENONE [Concomitant]
     Active Substance: EPLERENONE
  14. TRAMADOL HYDROCHLORIDE [Concomitant]
     Active Substance: TRAMADOL HYDROCHLORIDE
  15. NITROFURANTOIN [Concomitant]
     Active Substance: NITROFURANTOIN
  16. NEFOPAM [Concomitant]
     Active Substance: NEFOPAM
  17. MORPHINE SULFATE [Concomitant]
     Active Substance: MORPHINE SULFATE
  18. LOPERAMIDE HYDROCHLORIDE [Concomitant]
     Active Substance: LOPERAMIDE HYDROCHLORIDE
  19. DIAZEPAM [Concomitant]
     Active Substance: DIAZEPAM
  20. CITALOPRAM [Concomitant]
     Active Substance: CITALOPRAM HYDROBROMIDE
  21. NITROGLYCERIN [Concomitant]
     Active Substance: NITROGLYCERIN
  22. ATORVASTATIN [Concomitant]
     Active Substance: ATORVASTATIN
  23. ALBUTEROL [Concomitant]
     Active Substance: ALBUTEROL
  24. ACETAMINOPHEN [Concomitant]
     Active Substance: ACETAMINOPHEN
  25. LEVOTHYROXINE [Concomitant]
     Active Substance: LEVOTHYROXINE
  26. BISOPROLOL [Concomitant]
     Active Substance: BISOPROLOL

REACTIONS (2)
  - Death [Fatal]
  - Diverticular perforation [Recovering/Resolving]

NARRATIVE: CASE EVENT DATE: 20200505
